FAERS Safety Report 9352482 (Version 2)
Quarter: 2013Q4

REPORT INFORMATION
  Report Type: Spontaneous
  Country: US (occurrence: US)
  Receive Date: 20130617
  Receipt Date: 20131127
  Transmission Date: 20140711
  Serious: Yes (Hospitalization)
  Sender: FDA-Public Use
  Company Number: US-B.I. PHARMACEUTICALS,INC./RIDGEFIELD-2013-BI-16730BP

PATIENT
  Sex: Female
  Weight: 86.18 kg

DRUGS (6)
  1. PRADAXA [Suspect]
     Indication: ATRIAL FIBRILLATION
     Dates: start: 20110801, end: 20120718
  2. PRADAXA [Suspect]
     Dates: start: 20130226, end: 20130328
  3. LIPITOR [Concomitant]
     Dosage: 10 MG
     Route: 048
  4. ENALAPRIL [Concomitant]
     Dosage: 40 MG
     Route: 048
  5. ATENOLOL [Concomitant]
     Dosage: 100 MG
     Route: 048
  6. AMLODIPINE [Concomitant]
     Dosage: 2.5 MG
     Route: 048

REACTIONS (3)
  - Subdural haemorrhage [Unknown]
  - Subdural haematoma [Unknown]
  - Coagulopathy [Unknown]
